FAERS Safety Report 5920046-1 (Version None)
Quarter: 2008Q4

REPORT INFORMATION
  Report Type: 
  Country: None (occurrence: None)
  Receive Date: 20081014
  Receipt Date: 20081006
  Transmission Date: 20090506
  Serious: Yes (Other)
  Sender: FDA-Public Use
  Company Number: CHPA2008US16897

PATIENT
  Sex: Female

DRUGS (1)
  1. MAALOX MS TOTAL STOMACH RELIEF (NCH) (BISMUTH SUBSALICYLATE) SUSPENSIO [Suspect]
     Indication: ABDOMINAL DISCOMFORT
     Dosage: 1 CAPFUL, QD, ORAL
     Route: 048
     Dates: start: 20081004, end: 20081005

REACTIONS (2)
  - DEAFNESS [None]
  - WRONG TECHNIQUE IN DRUG USAGE PROCESS [None]
